FAERS Safety Report 6528057-2 (Version None)
Quarter: 2009Q4

REPORT INFORMATION
  Report Type: 
  Country: None (occurrence: None)
  Receive Date: 20091222
  Receipt Date: 20090916
  Transmission Date: 20100525
  Serious: No
  Sender: FDA-Public Use
  Company Number: ALL1-2009-02740

PATIENT
  Age: 79 Year
  Sex: Male
  Weight: 88.4 kg

DRUGS (14)
  1. VYVANSE [Suspect]
     Indication: ATTENTION DEFICIT/HYPERACTIVITY DISORDER
     Dosage: 50 MG, 1X/DAY:QD, ORAL ; 30 MG, 1X/DAY: QD, ORAL ; 20 MG, 1X/DAY:QD, ORAL ;  30 MG, 1X/DAY:QD, ORAL
     Route: 048
     Dates: start: 20090401, end: 20090101
  2. VYVANSE [Suspect]
     Indication: ATTENTION DEFICIT/HYPERACTIVITY DISORDER
     Dosage: 50 MG, 1X/DAY:QD, ORAL ; 30 MG, 1X/DAY: QD, ORAL ; 20 MG, 1X/DAY:QD, ORAL ;  30 MG, 1X/DAY:QD, ORAL
     Route: 048
     Dates: start: 20090301, end: 20090401
  3. VYVANSE [Suspect]
     Indication: ATTENTION DEFICIT/HYPERACTIVITY DISORDER
     Dosage: 50 MG, 1X/DAY:QD, ORAL ; 30 MG, 1X/DAY: QD, ORAL ; 20 MG, 1X/DAY:QD, ORAL ;  30 MG, 1X/DAY:QD, ORAL
     Route: 048
     Dates: start: 20090101, end: 20090901
  4. VYVANSE [Suspect]
     Indication: ATTENTION DEFICIT/HYPERACTIVITY DISORDER
     Dosage: 50 MG, 1X/DAY:QD, ORAL ; 30 MG, 1X/DAY: QD, ORAL ; 20 MG, 1X/DAY:QD, ORAL ;  30 MG, 1X/DAY:QD, ORAL
     Route: 048
     Dates: start: 20090901
  5. LEXAPRO [Concomitant]
  6. AMBIEN CR [Concomitant]
  7. EXELON /01383201/ (RIVASTIGMINE) [Concomitant]
  8. LIPITOR [Concomitant]
  9. ACIPHEX [Concomitant]
  10. CELEBREX [Concomitant]
  11. AZATHIOPRINE [Concomitant]
  12. QUININE SULFATE [Concomitant]
  13. ALPRAZOLAM [Concomitant]
  14. METOCLOPRAMIDE [Concomitant]

REACTIONS (6)
  - AGGRESSION [None]
  - CONFUSIONAL STATE [None]
  - DRUG INEFFECTIVE [None]
  - INTENTIONAL DRUG MISUSE [None]
  - THERAPEUTIC RESPONSE UNEXPECTED [None]
  - WEIGHT DECREASED [None]
